FAERS Safety Report 7714072 (Version 24)
Quarter: 2015Q3

REPORT INFORMATION
  Report Type: Report from Study
  Country: CA (occurrence: CA)
  Receive Date: 20101216
  Receipt Date: 20150702
  Transmission Date: 20151125
  Serious: Yes (Death, Hospitalization, Other)
  Sender: FDA-Public Use
  Company Number: PHHY2009CA47255

PATIENT
  Age: 65 Year
  Sex: Female

DRUGS (5)
  1. ELOCOM [Concomitant]
     Active Substance: MOMETASONE FUROATE
     Indication: PRODUCT USED FOR UNKNOWN INDICATION
     Route: 065
  2. PREDNISONE. [Concomitant]
     Active Substance: PREDNISONE
     Indication: PRODUCT USED FOR UNKNOWN INDICATION
     Route: 065
  3. UREMOL [Concomitant]
     Indication: PRODUCT USED FOR UNKNOWN INDICATION
     Route: 065
  4. SANDOSTATIN LAR DEPOT [Suspect]
     Active Substance: OCTREOTIDE ACETATE
     Indication: METASTATIC CARCINOID TUMOUR
     Dosage: 50 MG, EVERY 4 WEEKS
     Route: 030
     Dates: start: 20061120
  5. BENADRYL [Concomitant]
     Active Substance: DIPHENHYDRAMINE HYDROCHLORIDE
     Indication: PRODUCT USED FOR UNKNOWN INDICATION
     Dosage: 25 MG, UNK
     Route: 065

REACTIONS (19)
  - Death [Fatal]
  - Bronchitis [Unknown]
  - Gastric ulcer [Unknown]
  - Heart rate decreased [Unknown]
  - Gluten sensitivity [Unknown]
  - Sleep disorder [Unknown]
  - Liver disorder [Unknown]
  - Terminal state [Unknown]
  - Gastric varices [Unknown]
  - Erythema [Not Recovered/Not Resolved]
  - Blood pressure diastolic decreased [Unknown]
  - Sinusitis [Unknown]
  - Haemorrhage [Unknown]
  - Asthenia [Unknown]
  - Malaise [Not Recovered/Not Resolved]
  - Injection site pain [Unknown]
  - Gastrointestinal disorder [Unknown]
  - Hordeolum [Unknown]
  - Confusional state [Unknown]

NARRATIVE: CASE EVENT DATE: 201101
